FAERS Safety Report 23867940 (Version 1)
Quarter: 2024Q2

REPORT INFORMATION
  Report Type: Spontaneous
  Country: US (occurrence: None)
  Receive Date: 20240516
  Receipt Date: 20240516
  Transmission Date: 20240716
  Serious: Yes (Other)
  Sender: FDA-Public Use
  Company Number: None

PATIENT
  Age: 37 Year
  Sex: Male
  Weight: 143.1 kg

DRUGS (1)
  1. BRIXADI [Suspect]
     Active Substance: BUPRENORPHINE
     Indication: Drug use disorder
     Dosage: 24 MG WEEKLY SUBCUTANEOUS ?
     Route: 058
     Dates: start: 20240206, end: 20240512

REACTIONS (5)
  - Injection site erythema [None]
  - Injection site swelling [None]
  - Injection site mass [None]
  - Anaphylactic reaction [None]
  - Nodule [None]

NARRATIVE: CASE EVENT DATE: 20240425
